FAERS Safety Report 5452312-0 (Version None)
Quarter: 2007Q3

REPORT INFORMATION
  Report Type: 
  Country: None (occurrence: None)
  Receive Date: 20070912
  Receipt Date: 20070912
  Transmission Date: 20080115
  Serious: No
  Sender: FDA-Public Use
  Company Number: None

PATIENT
  Age: 36 Year
  Sex: Female
  Weight: 85.7298 kg

DRUGS (3)
  1. TEGRETOL [Suspect]
     Indication: BIPOLAR DISORDER
     Dosage: 2X, I THINK 3X A DAY PO
     Route: 048
     Dates: start: 20001005, end: 20010501
  2. DEPAKOTE [Suspect]
     Indication: BIPOLAR DISORDER
     Dosage: 1X, I THINK 3X A DAY PO
     Route: 048
     Dates: start: 20001005, end: 20010501
  3. RISPERDAL [Suspect]
     Indication: PSYCHOTIC DISORDER
     Dosage: 1 1X ADAY PO
     Route: 048
     Dates: start: 20001101, end: 20010501

REACTIONS (18)
  - ABDOMINAL RIGIDITY [None]
  - AMENORRHOEA [None]
  - BLADDER PAIN [None]
  - BLADDER SPASM [None]
  - CYSTITIS INTERSTITIAL [None]
  - DYSMENORRHOEA [None]
  - FATIGUE [None]
  - GASTRITIS [None]
  - GASTROOESOPHAGEAL REFLUX DISEASE [None]
  - MALAISE [None]
  - MUSCLE SPASMS [None]
  - NAUSEA [None]
  - NOCTURIA [None]
  - OVARIAN CYST [None]
  - PAIN [None]
  - POLLAKIURIA [None]
  - URINARY BLADDER HAEMORRHAGE [None]
  - WEIGHT INCREASED [None]
